FAERS Safety Report 9115685 (Version 1)
Quarter: 2013Q1

REPORT INFORMATION
  Report Type: Spontaneous
  Country: US (occurrence: None)
  Receive Date: 20130221
  Receipt Date: 20130221
  Transmission Date: 20140127
  Serious: Yes (Disabling)
  Sender: FDA-Public Use
  Company Number: None

PATIENT
  Age: 27 Year
  Sex: Female
  Weight: 52.16 kg

DRUGS (2)
  1. FROVA [Suspect]
     Indication: MIGRAINE
     Dates: start: 20130123
  2. LOESTIN [Concomitant]

REACTIONS (1)
  - Retinal artery occlusion [None]
